FAERS Safety Report 4490037-9 (Version None)
Quarter: 2004Q4

REPORT INFORMATION
  Report Type: 
  Country: None (occurrence: None)
  Receive Date: 20041027
  Receipt Date: 20041027
  Transmission Date: 20050328
  Serious: Yes (Hospitalization)
  Sender: FDA-Public Use
  Company Number: US013973

PATIENT
  Age: 38 Year
  Sex: Female
  Weight: 72.5755 kg

DRUGS (7)
  1. GABITRIL [Suspect]
     Indication: PAIN
     Dosage: 24 MG ONCE ORAL
     Route: 048
     Dates: start: 20040929, end: 20040929
  2. TOPAMAX [Suspect]
     Dosage: 100 MG BID ORAL
     Route: 048
  3. NORCO [Concomitant]
  4. VALIUM [Concomitant]
  5. DURAGESIC [Concomitant]
  6. EFFEXOR [Concomitant]
  7. PHENERGAN [Concomitant]

REACTIONS (11)
  - AMNESIA [None]
  - COMA [None]
  - CONVULSION [None]
  - DRUG SCREEN POSITIVE [None]
  - ELECTROENCEPHALOGRAM ABNORMAL [None]
  - MEDICATION ERROR [None]
  - METABOLIC ENCEPHALOPATHY [None]
  - OPIATES POSITIVE [None]
  - OVERDOSE [None]
  - TARDIVE DYSKINESIA [None]
  - THERAPY NON-RESPONDER [None]
